FAERS Safety Report 24737559 (Version 1)
Quarter: 2024Q4

REPORT INFORMATION
  Report Type: Spontaneous
  Country: GR (occurrence: GR)
  Receive Date: 20241216
  Receipt Date: 20241216
  Transmission Date: 20250115
  Serious: Yes (Other)
  Sender: MYLAN
  Company Number: GR-MYLANLABS-2024M1110320

PATIENT
  Age: 15 Year
  Sex: Female

DRUGS (1)
  1. DIMETHYL FUMARATE [Suspect]
     Active Substance: DIMETHYL FUMARATE
     Indication: Tumefactive multiple sclerosis
     Dosage: UNK
     Route: 065

REACTIONS (6)
  - Multiple sclerosis relapse [Unknown]
  - Dizziness [Unknown]
  - Gait disturbance [Unknown]
  - Dysarthria [Unknown]
  - Drug ineffective [Unknown]
  - Off label use [Unknown]
